FAERS Safety Report 8620041-8 (Version None)
Quarter: 2012Q3

REPORT INFORMATION
  Report Type: 
  Country: None (occurrence: None)
  Receive Date: 20120824
  Receipt Date: 20120808
  Transmission Date: 20120928
  Serious: Yes (Life-Threatening)
  Sender: FDA-Public Use
  Company Number: JP-FRI-1000037753

PATIENT
  Sex: Male

DRUGS (4)
  1. GARENOXACIN MESYLATE [Concomitant]
     Dosage: 400 MG
     Route: 048
  2. ALPRAZOLAM [Concomitant]
     Indication: INSOMNIA
     Dosage: 0.4 MG
     Route: 048
     Dates: start: 20120724
  3. HUSCODE [Concomitant]
     Dosage: 9 DOSAGE FORMS
     Route: 048
     Dates: start: 20120721
  4. ESCITALOPRAM [Suspect]
     Indication: DEPRESSION
     Dosage: 10 MG
     Route: 048
     Dates: start: 20120724

REACTIONS (5)
  - DIZZINESS [None]
  - FEELING HOT [None]
  - NAUSEA [None]
  - PALPITATIONS [None]
  - ACTIVATION SYNDROME [None]
